FAERS Safety Report 10169101 (Version 2)
Quarter: 2014Q2

REPORT INFORMATION
  Report Type: Report from Study
  Country: DE (occurrence: DE)
  Receive Date: 20140513
  Receipt Date: 20140527
  Transmission Date: 20141212
  Serious: Yes (Death, Other)
  Sender: FDA-Public Use
  Company Number: DE-ROCHE-1399517

PATIENT
  Age: 93 Year
  Sex: Female

DRUGS (2)
  1. ALTEPLASE [Suspect]
     Indication: ISCHAEMIC STROKE
     Route: 042
  2. PHENPROCOUMON [Suspect]
     Indication: ANTICOAGULANT THERAPY
     Dosage: 100
     Route: 065

REACTIONS (3)
  - Death [Fatal]
  - Cerebral haemorrhage [Unknown]
  - Haemorrhage intracranial [Unknown]
